FAERS Safety Report 11072227 (Version 1)
Quarter: 2015Q2

REPORT INFORMATION
  Report Type: Spontaneous
  Country: US (occurrence: US)
  Receive Date: 20150428
  Receipt Date: 20150428
  Transmission Date: 20150821
  Serious: Yes (Hospitalization, Other)
  Sender: FDA-Public Use
  Company Number: US-ACTAVIS-2015-08362

PATIENT
  Age: 70 Year
  Sex: Female

DRUGS (4)
  1. TRASTUZUMAB [Concomitant]
     Active Substance: TRASTUZUMAB
     Indication: HER-2 POSITIVE BREAST CANCER
     Dosage: UNK UNK, 5 CYCLES, CYCLICAL
     Route: 065
  2. PEGFILGRASTIM [Concomitant]
     Active Substance: PEGFILGRASTIM
     Indication: PRODUCT USED FOR UNKNOWN INDICATION
     Dosage: UNK
     Route: 065
  3. CARBOPLATIN. [Concomitant]
     Active Substance: CARBOPLATIN
     Indication: HER-2 POSITIVE BREAST CANCER
     Dosage: UNK UNK,5 CYCLES, CYCLICAL
     Route: 065
  4. DOCETAXEL (ACTAVIS) [Suspect]
     Active Substance: DOCETAXEL
     Indication: HER-2 POSITIVE BREAST CANCER
     Dosage: UNK UNK,5 CYCLES, CYCLICAL
     Route: 065

REACTIONS (3)
  - Enterocolitis [Recovered/Resolved]
  - Large intestine perforation [Recovered/Resolved]
  - Peritonitis [Recovered/Resolved]
